FAERS Safety Report 4983134-2 (Version None)
Quarter: 2006Q2

REPORT INFORMATION
  Report Type: 
  Country: None (occurrence: None)
  Receive Date: 20060419
  Receipt Date: 20060404
  Transmission Date: 20061013
  Serious: Yes (Hospitalization)
  Sender: FDA-Public Use
  Company Number: GXKR2006DE01967

PATIENT
  Age: 54 Year
  Sex: Female

DRUGS (1)
  1. DEXAMETHASONE [Suspect]
     Indication: DEAFNESS
     Dosage: 100 MG, QD, INTRAVENOUS
     Route: 042

REACTIONS (9)
  - ACCIDENTAL OVERDOSE [None]
  - COGNITIVE DISORDER [None]
  - CONFABULATION [None]
  - DISTURBANCE IN ATTENTION [None]
  - EMOTIONAL DISORDER [None]
  - LEARNING DISORDER [None]
  - MANIA [None]
  - MEMORY IMPAIRMENT [None]
  - MENTAL IMPAIRMENT [None]
